FAERS Safety Report 8812218 (Version 2)
Quarter: 2012Q4

REPORT INFORMATION
  Report Type: Spontaneous
  Country: DK (occurrence: None)
  Receive Date: 20120925
  Receipt Date: 20121121
  Transmission Date: 20130627
  Serious: Yes (Hospitalization, Other)
  Sender: FDA-Public Use
  Company Number: 2012MA011435

PATIENT
  Age: 73 Year
  Sex: Female

DRUGS (7)
  1. DONEPEZIL HYDROCHLORIDE [Suspect]
     Route: 048
     Dates: start: 20120507, end: 20120703
  2. LEVODOPA [Concomitant]
  3. CARBIDOPA [Concomitant]
  4. BUMETANIDE [Concomitant]
  5. SINEMET [Concomitant]
  6. BURINEX [Concomitant]
  7. ACETYLSALICYLIC ACID [Concomitant]

REACTIONS (1)
  - Transient ischaemic attack [None]
